FAERS Safety Report 5080977-4 (Version None)
Quarter: 2006Q3

REPORT INFORMATION
  Report Type: 
  Country: None (occurrence: None)
  Receive Date: 20060720
  Receipt Date: 20060428
  Transmission Date: 20061208
  Serious: Yes (Other)
  Sender: FDA-Public Use
  Company Number: 2005165157

PATIENT
  Age: 56 Year
  Sex: Male
  Weight: 113.3993 kg

DRUGS (2)
  1. CELEBREX [Suspect]
     Indication: BACK PAIN
     Dosage: (200 MG, UNKNOWN)
     Dates: start: 20030902
  2. VIOXX [Suspect]
     Indication: BACK PAIN
     Dates: start: 20030226

REACTIONS (1)
  - MYOCARDIAL INFARCTION [None]
